FAERS Safety Report 8643007 (Version 3)
Quarter: 2014Q1

REPORT INFORMATION
  Report Type: Spontaneous
  Country: US (occurrence: US)
  Receive Date: 20120629
  Receipt Date: 20140107
  Transmission Date: 20141002
  Serious: Yes (Hospitalization, Other)
  Sender: FDA-Public Use
  Company Number: US-ASTRAZENECA-2012SE34615

PATIENT
  Age: 686 Month
  Sex: Male
  Weight: 93 kg

DRUGS (14)
  1. NEXIUM [Suspect]
     Indication: GASTROOESOPHAGEAL REFLUX DISEASE
     Dosage: ONCE TIME A DAY
     Route: 048
  2. NEXIUM [Suspect]
     Indication: GASTROOESOPHAGEAL REFLUX DISEASE
     Route: 048
     Dates: start: 20010910
  3. FLURAZEPAM [Concomitant]
     Dates: start: 20090915
  4. CARTIA XT [Concomitant]
     Dates: start: 20000501
  5. FAMVIR [Concomitant]
     Dates: start: 20001201
  6. PRILOSEC [Concomitant]
     Dates: start: 20000501
  7. CLONIDINE HCL [Concomitant]
     Dates: start: 20000501
  8. ACETAMINOPHEN/COD [Concomitant]
     Dates: start: 20000815
  9. HYDROCODONE/APAP [Concomitant]
     Dosage: 7.5/750 MG
     Dates: start: 20000905
  10. PREVACID [Concomitant]
     Dates: start: 20001121
  11. VIAGRA [Concomitant]
     Dates: start: 20010404
  12. DIOVAN HCL [Concomitant]
     Dosage: 80/12.5 MG
     Dates: start: 20010426
  13. CRESTOR [Concomitant]
     Dates: start: 20040903
  14. ALPRAZOLAM [Concomitant]
     Dates: start: 20050329

REACTIONS (14)
  - Cerebrovascular accident [Unknown]
  - Hernia [Unknown]
  - Infection [Unknown]
  - Sleep disorder [Unknown]
  - Osteoporosis [Unknown]
  - Arthritis [Unknown]
  - Calcium deficiency [Unknown]
  - Cataract [Unknown]
  - Chronic obstructive pulmonary disease [Unknown]
  - Diabetes mellitus [Unknown]
  - Multiple fractures [Unknown]
  - Bone disorder [Unknown]
  - Vitamin D deficiency [Unknown]
  - Depression [Unknown]
